FAERS Safety Report 19254947 (Version 1)
Quarter: 2021Q2

REPORT INFORMATION
  Report Type: Spontaneous
  Country: ES (occurrence: ES)
  Receive Date: 20210513
  Receipt Date: 20210513
  Transmission Date: 20210717
  Serious: Yes (Hospitalization)
  Sender: FDA-Public Use
  Company Number: ES-AUROBINDO-AUR-APL-2021-019545

PATIENT
  Age: 90 Year
  Sex: Male

DRUGS (3)
  1. DEPRAX [SERTRALINE HYDROCHLORIDE] [Interacting]
     Active Substance: SERTRALINE HYDROCHLORIDE
     Indication: COGNITIVE DISORDER
     Dosage: 100 MILLIGRAM, ONCE A DAY
     Route: 048
     Dates: end: 20210412
  2. LORAZEPAM. [Interacting]
     Active Substance: LORAZEPAM
     Indication: COGNITIVE DISORDER
     Dosage: 1 MILLIGRAM, ONCE A DAY
     Route: 048
     Dates: start: 20210412, end: 20210412
  3. QUETIAPINE. [Suspect]
     Active Substance: QUETIAPINE
     Indication: COGNITIVE DISORDER
     Dosage: 25 MILLIGRAM, TWO TIMES A DAY
     Route: 048

REACTIONS (2)
  - Disorientation [Recovered/Resolved]
  - Incorrect dose administered [Recovered/Resolved]

NARRATIVE: CASE EVENT DATE: 20210412
